FAERS Safety Report 11114703 (Version 1)
Quarter: 2015Q2

REPORT INFORMATION
  Report Type: Spontaneous
  Country: GB (occurrence: None)
  Receive Date: 20150513
  Receipt Date: 20150513
  Transmission Date: 20150821
  Serious: Yes (Death)
  Sender: FDA-Public Use
  Company Number: GB-H14001-15-00668

PATIENT
  Age: 83 Year
  Sex: Male

DRUGS (11)
  1. MEROPENEM (MEROPENEM) [Suspect]
     Active Substance: MEROPENEM
     Indication: URINARY TRACT INFECTION
     Dosage: 3 GM (1 GM, 3 IN 1 D)
     Route: 042
     Dates: start: 20150203, end: 20150210
  2. OMEPRAZOLE (OMEPRAZOLE) UNKNOWN [Suspect]
     Active Substance: OMEPRAZOLE
     Indication: PRODUCT USED FOR UNKNOWN INDICATION
     Route: 042
     Dates: start: 20150311, end: 20150316
  3. LANSOPRAZOLE (LANSOPRAZOLE) UNKNOWN [Suspect]
     Active Substance: LANSOPRAZOLE
     Indication: PRODUCT USED FOR UNKNOWN INDICATION
     Route: 048
     Dates: start: 20150122, end: 20150226
  4. TAZOCIN (PIP/TAZO) [Suspect]
     Active Substance: PIPERACILLIN SODIUM\TAZOBACTAM SODIUM
     Indication: PNEUMONIA ASPIRATION
     Dosage: 13.5 GM (4.5 GM, 3 IN 1 D)
     Route: 042
     Dates: start: 20150122, end: 20150127
  5. TAZOCIN (PIP/TAZO) [Suspect]
     Active Substance: PIPERACILLIN SODIUM\TAZOBACTAM SODIUM
     Indication: LOWER RESPIRATORY TRACT INFECTION
     Dosage: 13.5 GM (4.5 GM, 3 IN 1 D)
     Route: 042
     Dates: start: 20150122, end: 20150127
  6. DOXYCYCLINE (DOXYCYCLINE) UNKNOWN [Suspect]
     Active Substance: DOXYCYCLINE
     Indication: URINARY TRACT INFECTION
     Route: 048
     Dates: start: 20150201, end: 20150206
  7. OFLOXACIN (OFLOXACIN) (OFLOXACIN) [Suspect]
     Active Substance: OFLOXACIN
     Indication: EPIDIDYMITIS
     Dosage: 400 MG (200 MG,2 IN 1 D)
     Route: 048
     Dates: start: 20150129, end: 20150212
  8. VANCOMYCIN (VANCOMYCIN) (UNKNOWN)  (VANCOMYCIN) [Suspect]
     Active Substance: VANCOMYCIN
     Indication: PNEUMONIA ASPIRATION
     Dosage: 1000 MG (500 MG, 2 IN 1 D)
     Route: 042
     Dates: start: 20150320, end: 20150325
  9. CLARITHROMYCIN (CLARITHROMYCIN) (UNKNOWN) (CLARITHROMYCIN) [Suspect]
     Active Substance: CLARITHROMYCIN
     Indication: PNEUMONIA ASPIRATION
     Dosage: 13.5 GM (4.5GM, 3 IN 1 D)
     Route: 042
     Dates: start: 20150201, end: 20150206
  10. MEROPENEM (MEROPENEM) [Suspect]
     Active Substance: MEROPENEM
     Indication: UROSEPSIS
     Dosage: 3 GM (1 GM, 3 IN 1 D)
     Route: 042
     Dates: start: 20150203, end: 20150210
  11. MEROPENEM (MEROPENEM) [Suspect]
     Active Substance: MEROPENEM
     Indication: LOWER RESPIRATORY TRACT INFECTION
     Dosage: 3 GM (1 GM, 3 IN 1 D)
     Route: 042
     Dates: start: 20150203, end: 20150210

REACTIONS (1)
  - Clostridium difficile infection [None]

NARRATIVE: CASE EVENT DATE: 20150316
